FAERS Safety Report 20321747 (Version 1)
Quarter: 2022Q1

REPORT INFORMATION
  Report Type: Spontaneous
  Country: US (occurrence: None)
  Receive Date: 20220111
  Receipt Date: 20220111
  Transmission Date: 20220423
  Serious: Yes (Hospitalization)
  Sender: FDA-Public Use
  Company Number: None

PATIENT
  Sex: Female
  Weight: 107.5 kg

DRUGS (4)
  1. METHOTREXATE [Suspect]
     Active Substance: METHOTREXATE
  2. PEG-L ASPARAGINASE (PEGASPRAGASE, ONCOSPAR) [Concomitant]
  3. RITUXIMAB (MOAB C2B8 ANTI CD20, CHIMERIC) [Concomitant]
  4. VINCRISTINE SULFATE [Concomitant]
     Active Substance: VINCRISTINE SULFATE

REACTIONS (7)
  - Hyperactive pharyngeal reflex [None]
  - Haemoptysis [None]
  - Oropharyngeal pain [None]
  - Lip oedema [None]
  - Lip dry [None]
  - Oral mucosal discolouration [None]
  - Stomatitis [None]

NARRATIVE: CASE EVENT DATE: 20220109
